FAERS Safety Report 13088285 (Version 2)
Quarter: 2017Q1

REPORT INFORMATION
  Report Type: Spontaneous
  Country: BR (occurrence: BR)
  Receive Date: 20170105
  Receipt Date: 20170315
  Transmission Date: 20170428
  Serious: Yes (Hospitalization, Other)
  Sender: FDA-Public Use
  Company Number: BR-GLAXOSMITHKLINE-BR2016GSK164351

PATIENT
  Sex: Female
  Weight: 65 kg

DRUGS (1)
  1. BENLYSTA [Suspect]
     Active Substance: BELIMUMAB
     Indication: SYSTEMIC LUPUS ERYTHEMATOSUS
     Dosage: UNK
     Dates: start: 20160919

REACTIONS (11)
  - Oropharyngeal pain [Not Recovered/Not Resolved]
  - Urinary tract infection [Recovered/Resolved]
  - Pyrexia [Unknown]
  - Vomiting [Unknown]
  - Hypersensitivity [Not Recovered/Not Resolved]
  - Disease recurrence [Unknown]
  - Inappropriate schedule of drug administration [Unknown]
  - Pruritus generalised [Unknown]
  - Nephrolithiasis [Unknown]
  - Renal disorder [Recovered/Resolved]
  - Medication error [Recovered/Resolved]
